FAERS Safety Report 8072600-1 (Version None)
Quarter: 2012Q1

REPORT INFORMATION
  Report Type: 
  Country: None (occurrence: None)
  Receive Date: 20120126
  Receipt Date: 20120117
  Transmission Date: 20120608
  Serious: Yes (Other)
  Sender: FDA-Public Use
  Company Number: DE-PFIZER INC-2012018258

PATIENT
  Sex: Male

DRUGS (5)
  1. MARCUMAR [Concomitant]
     Dosage: UNK
  2. TAMBOCOR [Concomitant]
     Indication: ARRHYTHMIA
  3. KALINOR [Concomitant]
     Indication: ELECTROLYTE SUBSTITUTION THERAPY
  4. AMIODARONE HCL [Suspect]
     Indication: ATRIAL FIBRILLATION
     Dosage: UNK
  5. SOTALOL [Concomitant]
     Indication: ARRHYTHMIA

REACTIONS (5)
  - RETINAL INFARCTION [None]
  - ANGINA PECTORIS [None]
  - FATIGUE [None]
  - DRUG INEFFECTIVE [None]
  - ATRIAL FIBRILLATION [None]
